FAERS Safety Report 9209086 (Version 2)
Quarter: 2014Q1

REPORT INFORMATION
  Report Type: Spontaneous
  Country: US (occurrence: None)
  Receive Date: 20120817
  Receipt Date: 20130815
  Transmission Date: 20141002
  Serious: Yes (Other)
  Sender: FDA-Public Use
  Company Number: ADR-2012-01092

PATIENT
  Sex: Male

DRUGS (3)
  1. LIORESAL INTRATHECAL (BACLOFEN INJECTION) [Suspect]
     Indication: MUSCLE SPASTICITY
  2. LIORESAL INTRATHECAL (BACLOFEN INJECTION) [Suspect]
  3. MORPHINE [Concomitant]

REACTIONS (6)
  - Muscle spasms [None]
  - Progressive multiple sclerosis [None]
  - No therapeutic response [None]
  - Muscle spasticity [None]
  - Fatigue [None]
  - Asthenia [None]
